FAERS Safety Report 21829412 (Version 2)
Quarter: 2023Q1

REPORT INFORMATION
  Report Type: Other
  Country: ES (occurrence: ES)
  Receive Date: 20230106
  Receipt Date: 20230109
  Transmission Date: 20230417
  Serious: Yes (Life-Threatening, Hospitalization, Other)
  Sender: FDA-Public Use
  Company Number: None

PATIENT
  Sex: Male

DRUGS (1)
  1. PROGRAF [Suspect]
     Active Substance: TACROLIMUS
     Indication: Prophylaxis against graft versus host disease
     Dosage: 8 MG MORNINGS + 7 MG EVENINGS, TWICE DAILY
     Route: 048
     Dates: start: 20221122, end: 20221125

REACTIONS (2)
  - Acute kidney injury [Recovered/Resolved]
  - Off label use [Unknown]

NARRATIVE: CASE EVENT DATE: 20221122
